FAERS Safety Report 11367650 (Version 2)
Quarter: 2015Q3

REPORT INFORMATION
  Report Type: Spontaneous
  Country: US (occurrence: US)
  Receive Date: 20150811
  Receipt Date: 20150903
  Transmission Date: 20151125
  Serious: No
  Sender: FDA-Public Use
  Company Number: US-ELI_LILLY_AND_COMPANY-US201205008569

PATIENT
  Age: 65 Year
  Sex: Male

DRUGS (2)
  1. AXIRON [Suspect]
     Active Substance: TESTOSTERONE
     Indication: BLOOD TESTOSTERONE DECREASED
     Dosage: 1 DF, QD
  2. CYMBALTA [Suspect]
     Active Substance: DULOXETINE HYDROCHLORIDE
     Indication: DEPRESSION
     Dosage: 30 MG, QD
     Dates: start: 20120512

REACTIONS (9)
  - Drug ineffective [Unknown]
  - Asthenopia [Unknown]
  - Fatigue [Unknown]
  - Cognitive disorder [Unknown]
  - Decreased appetite [Unknown]
  - Constipation [Unknown]
  - Apathy [Unknown]
  - Feeling abnormal [Unknown]
  - Ocular hyperaemia [Recovering/Resolving]
